FAERS Safety Report 5456056-0 (Version None)
Quarter: 2007Q3

REPORT INFORMATION
  Report Type: 
  Country: None (occurrence: None)
  Receive Date: 20070917
  Receipt Date: 20070917
  Transmission Date: 20080115
  Serious: Yes (Death)
  Sender: FDA-Public Use
  Company Number: None

PATIENT
  Sex: Male

DRUGS (1)
  1. CIPRO [Suspect]

REACTIONS (18)
  - ANASTOMOTIC LEAK [None]
  - ANXIETY [None]
  - COMPLETED SUICIDE [None]
  - COMPUTERISED TOMOGRAM ABDOMEN ABNORMAL [None]
  - DECREASED INTEREST [None]
  - FEELING ABNORMAL [None]
  - GASTROINTESTINAL INFECTION [None]
  - HAEMATOMA [None]
  - HALLUCINATION, AUDITORY [None]
  - ILEITIS [None]
  - INFLAMMATION [None]
  - NERVOUSNESS [None]
  - OBSESSIVE THOUGHTS [None]
  - OEDEMA [None]
  - PARANOIA [None]
  - PELVIC FLUID COLLECTION [None]
  - PERITONITIS [None]
  - POST PROCEDURAL COMPLICATION [None]
